FAERS Safety Report 4559010-6 (Version None)
Quarter: 2005Q1

REPORT INFORMATION
  Report Type: 
  Country: None (occurrence: None)
  Receive Date: 20050124
  Receipt Date: 20041220
  Transmission Date: 20050727
  Serious: Yes (Hospitalization)
  Sender: FDA-Public Use
  Company Number: US-BRISTOL-MYERS SQUIBB COMPANY-12800447

PATIENT
  Age: 78 Year
  Sex: Female
  Weight: 91 kg

DRUGS (12)
  1. CETUXIMAB [Suspect]
     Indication: NON-SMALL CELL LUNG CANCER
     Route: 042
     Dates: start: 20041216, end: 20041216
  2. CARBOPLATIN [Suspect]
     Indication: NON-SMALL CELL LUNG CANCER
     Route: 042
     Dates: start: 20041216, end: 20041216
  3. DOCETAXEL [Suspect]
     Indication: NON-SMALL CELL LUNG CANCER
     Route: 042
     Dates: start: 20041216, end: 20041216
  4. LISINOPRIL AND HYDROCHLOROTHIAZIDE [Concomitant]
     Indication: HYPERTENSION
     Route: 048
     Dates: start: 20040719
  5. CLOPIDOGREL BISULFATE [Concomitant]
     Indication: ANGIOPLASTY
     Route: 048
     Dates: start: 20040623
  6. PRAVASTATIN SODIUM [Concomitant]
     Indication: HYPERCHOLESTEROLAEMIA
     Route: 048
     Dates: start: 20041005
  7. ISOSORBIDE [Concomitant]
     Indication: HYPERTENSION
     Route: 048
     Dates: start: 20020101
  8. ASPIRIN [Concomitant]
     Indication: PROPHYLAXIS
     Route: 048
     Dates: start: 20020101
  9. ATORVASTATIN [Concomitant]
     Indication: HYPERCHOLESTEROLAEMIA
     Route: 048
     Dates: start: 20040623
  10. NPH INSULIN [Concomitant]
     Indication: DIABETES MELLITUS INSULIN-DEPENDENT
     Dates: start: 19740101
  11. INSULIN [Concomitant]
     Indication: DIABETES MELLITUS INSULIN-DEPENDENT
     Dates: start: 19740101
  12. DEXAMETHASONE [Concomitant]
     Indication: PREMEDICATION
     Route: 048

REACTIONS (2)
  - HEMIPARESIS [None]
  - HYPERTENSION [None]
